FAERS Safety Report 7365376-4 (Version None)
Quarter: 2011Q1

REPORT INFORMATION
  Report Type: 
  Country: None (occurrence: None)
  Receive Date: 20110322
  Receipt Date: 20110309
  Transmission Date: 20110831
  Serious: No
  Sender: FDA-Public Use
  Company Number: US-BIOGENIDEC-2011BI009194

PATIENT
  Sex: Female

DRUGS (3)
  1. AVONEX [Suspect]
     Route: 030
     Dates: start: 20001201, end: 20030801
  2. AVONEX [Suspect]
     Indication: MULTIPLE SCLEROSIS
     Route: 030
     Dates: start: 20030801
  3. BIRTH CONTROL [Concomitant]
     Indication: CONTRACEPTION
     Dates: start: 20000101, end: 20101201

REACTIONS (6)
  - VERTIGO [None]
  - AGORAPHOBIA [None]
  - ANXIETY DISORDER [None]
  - OBSESSIVE-COMPULSIVE DISORDER [None]
  - INJECTION SITE HAEMATOMA [None]
  - INJECTION SITE CELLULITIS [None]
